FAERS Safety Report 6914335 (Version 2)
Quarter: 2014Q1

REPORT INFORMATION
  Report Type: Spontaneous
  Country: US (occurrence: US)
  Receive Date: 20090220
  Receipt Date: 20140214
  Transmission Date: 20141002
  Serious: Yes (Other)
  Sender: FDA-Public Use
  Company Number: US-ASTRAZENECA-2009UW04328

PATIENT
  Age: 56 Year
  Sex: Female

DRUGS (3)
  1. SEROQUEL [Suspect]
     Route: 048
  2. COUMADIN [Concomitant]
  3. UNSPECIFIED OTHER MEDICATIONS [Concomitant]

REACTIONS (5)
  - Myocardial infarction [Unknown]
  - Panic attack [Unknown]
  - Bipolar disorder [Unknown]
  - Bipolar I disorder [Unknown]
  - Drug ineffective [Unknown]
